FAERS Safety Report 6022469-1 (Version None)
Quarter: 2008Q4

REPORT INFORMATION
  Report Type: 
  Country: None (occurrence: None)
  Receive Date: 20081221
  Receipt Date: 20081221
  Transmission Date: 20090506
  Serious: Yes (Other)
  Sender: FDA-Public Use
  Company Number: None

PATIENT
  Age: 8 Year
  Sex: Female
  Weight: 22.6799 kg

DRUGS (1)
  1. CIPROFLOXACIN HCL [Suspect]
     Indication: CONJUNCTIVITIS VIRAL
     Dosage: 2 DROPS 3X DAILY OPHTHALMIC
     Route: 047
     Dates: start: 20081218, end: 20081220

REACTIONS (1)
  - URTICARIA [None]
